FAERS Safety Report 5656782-4 (Version None)
Quarter: 2008Q1

REPORT INFORMATION
  Report Type: 
  Country: None (occurrence: None)
  Receive Date: 20080310
  Receipt Date: 20080225
  Transmission Date: 20080703
  Serious: Yes (Hospitalization)
  Sender: FDA-Public Use
  Company Number: SE-AMGEN-UK267736

PATIENT
  Sex: Male

DRUGS (1)
  1. MIMPARA [Suspect]
     Indication: HYPERPARATHYROIDISM SECONDARY
     Dates: start: 20061001

REACTIONS (4)
  - BLOOD CALCIUM INCREASED [None]
  - BLOOD PARATHYROID HORMONE INCREASED [None]
  - CONFUSIONAL STATE [None]
  - PARATHYROIDECTOMY [None]
